FAERS Safety Report 4419391-0 (Version None)
Quarter: 2004Q3

REPORT INFORMATION
  Report Type: 
  Country: None (occurrence: None)
  Receive Date: 20040809
  Receipt Date: 20040123
  Transmission Date: 20050211
  Serious: No
  Sender: FDA-Public Use
  Company Number: US-GLAXOSMITHKLINE-A0495032A

PATIENT
  Age: 62 Year
  Sex: Female

DRUGS (3)
  1. PAXIL [Suspect]
     Indication: DEPRESSION
     Dosage: 20MG PER DAY
     Route: 048
  2. REQUIP [Suspect]
     Indication: DYSTONIA
     Dosage: .25MG THREE TIMES PER DAY
     Route: 048
     Dates: start: 20031201
  3. LIPITOR [Concomitant]

REACTIONS (6)
  - CONFUSIONAL STATE [None]
  - DRUG INEFFECTIVE [None]
  - FATIGUE [None]
  - NAUSEA [None]
  - SOMNOLENCE [None]
  - URINARY RETENTION [None]
